FAERS Safety Report 7186731-1 (Version None)
Quarter: 2010Q4

REPORT INFORMATION
  Report Type: 
  Country: None (occurrence: None)
  Receive Date: 20101222
  Receipt Date: 20101216
  Transmission Date: 20110411
  Serious: Yes (Hospitalization, Other)
  Sender: FDA-Public Use
  Company Number: FR-PFIZER INC-2010176641

PATIENT
  Age: 63 Year
  Sex: Male

DRUGS (3)
  1. EUPANTOL [Suspect]
     Dosage: UNK
     Dates: start: 20101001, end: 20101102
  2. DETICENE [Suspect]
     Dosage: UNK
     Route: 041
     Dates: start: 20101014, end: 20101014
  3. PAMIDRONIC ACID [Suspect]
     Dosage: UNK
     Route: 041
     Dates: start: 20101028, end: 20101028

REACTIONS (2)
  - PANCYTOPENIA [None]
  - UROSEPSIS [None]
